FAERS Safety Report 5335943-8 (Version None)
Quarter: 2007Q2

REPORT INFORMATION
  Report Type: 
  Country: None (occurrence: None)
  Receive Date: 20070301
  Receipt Date: 20060107
  Transmission Date: 20071010
  Serious: Yes (Hospitalization)
  Sender: FDA-Public Use
  Company Number: 002#1#2006-00006

PATIENT
  Sex: Female

DRUGS (1)
  1. REGLAN [Suspect]
     Indication: LACTATION DISORDER
     Dosage: ORAL
     Route: 048

REACTIONS (6)
  - ANXIETY [None]
  - BLUNTED AFFECT [None]
  - DEPRESSION [None]
  - DRUG WITHDRAWAL SYNDROME [None]
  - EXTRAPYRAMIDAL DISORDER [None]
  - INSOMNIA [None]
